FAERS Safety Report 13907491 (Version 1)
Quarter: 2017Q3

REPORT INFORMATION
  Report Type: Spontaneous
  Country: US (occurrence: US)
  Receive Date: 20170825
  Receipt Date: 20170825
  Transmission Date: 20171127
  Serious: No
  Sender: FDA-Public Use
  Company Number: US-ROCHE-1075400

PATIENT
  Sex: Male

DRUGS (3)
  1. DDAVP [Concomitant]
     Active Substance: DESMOPRESSIN ACETATE
  2. NUTROPIN [Suspect]
     Active Substance: SOMATROPIN
     Indication: PRODUCT USED FOR UNKNOWN INDICATION
  3. LEVOTHYROXIN [Concomitant]
     Active Substance: LEVOTHYROXINE

REACTIONS (3)
  - Osteochondroma [Unknown]
  - Hypopituitarism [Unknown]
  - T-cell lymphoma [Unknown]
